FAERS Safety Report 7803889-9 (Version None)
Quarter: 2011Q4

REPORT INFORMATION
  Report Type: 
  Country: None (occurrence: None)
  Receive Date: 20111010
  Receipt Date: 20111004
  Transmission Date: 20120403
  Serious: Yes (Other)
  Sender: FDA-Public Use
  Company Number: US-PFIZER INC-2011238602

PATIENT
  Sex: Female

DRUGS (2)
  1. PHENYTOIN [Suspect]
     Dosage: UNK
  2. DILANTIN-125 [Suspect]
     Dosage: 400 MG, 1X/DAY

REACTIONS (1)
  - CONVULSION [None]
